FAERS Safety Report 5316949-1 (Version None)
Quarter: 2007Q2

REPORT INFORMATION
  Report Type: 
  Country: None (occurrence: None)
  Receive Date: 20070501
  Receipt Date: 20070501
  Transmission Date: 20071010
  Serious: Yes (Disabling)
  Sender: FDA-Public Use
  Company Number: None

PATIENT
  Age: 33 Year
  Sex: Female

DRUGS (7)
  1. ZOFRAN [Suspect]
     Indication: NAUSEA
     Dosage: 4 MG   IV
     Route: 042
     Dates: start: 20070316, end: 20070316
  2. ZOFRAN [Suspect]
     Indication: VOMITING
     Dosage: 4 MG   IV
     Route: 042
     Dates: start: 20070316, end: 20070316
  3. KLONOPIN [Concomitant]
  4. PAXIL [Concomitant]
  5. ADVIL [Concomitant]
  6. HYDROCHLOROTHIAZIDE [Concomitant]
  7. LORTAB [Concomitant]

REACTIONS (2)
  - CONVULSION [None]
  - FEELING ABNORMAL [None]
